FAERS Safety Report 4883317-6 (Version None)
Quarter: 2006Q1

REPORT INFORMATION
  Report Type: 
  Country: None (occurrence: None)
  Receive Date: 20060118
  Receipt Date: 20060113
  Transmission Date: 20060701
  Serious: Yes (Life-Threatening, Disabling)
  Sender: FDA-Public Use
  Company Number: US-GLAXOSMITHKLINE-A0589238A

PATIENT
  Age: 47 Year
  Sex: Female

DRUGS (3)
  1. AVODART [Suspect]
     Dosage: 1CAP TWICE PER DAY
     Route: 048
     Dates: start: 20051218, end: 20060113
  2. LOVASTATIN [Concomitant]
  3. BENAZEPRIL HYDROCHLOROTHIAZIDE [Concomitant]

REACTIONS (4)
  - ABDOMINAL PAIN UPPER [None]
  - BLOOD GLUCOSE INCREASED [None]
  - MEDICATION ERROR [None]
  - OVERDOSE [None]
